FAERS Safety Report 5045727-6 (Version None)
Quarter: 2006Q3

REPORT INFORMATION
  Report Type: 
  Country: None (occurrence: None)
  Receive Date: 20060710
  Receipt Date: 20060629
  Transmission Date: 20061208
  Serious: Yes (Other)
  Sender: FDA-Public Use
  Company Number: PHEH2006US08480

PATIENT
  Age: 50 Year
  Sex: Female

DRUGS (6)
  1. TRILEPTAL [Suspect]
     Dosage: 300 MG, BID
     Route: 048
     Dates: start: 20060323, end: 20060608
  2. LOMIDE [Concomitant]
     Dosage: UNK, BID
  3. INFERGEN [Concomitant]
  4. MERITAL [Concomitant]
  5. ALDACTONE [Concomitant]
  6. PREVACID [Concomitant]

REACTIONS (3)
  - HAEMOGLOBIN DECREASED [None]
  - PLATELET COUNT DECREASED [None]
  - WHITE BLOOD CELL COUNT DECREASED [None]
